FAERS Safety Report 13947903 (Version 1)
Quarter: 2017Q3

REPORT INFORMATION
  Report Type: Spontaneous
  Country: CN (occurrence: CN)
  Receive Date: 20170908
  Receipt Date: 20170908
  Transmission Date: 20171128
  Serious: Yes (Other)
  Sender: FDA-Public Use
  Company Number: CN-BAXTER-2017BAX031483

PATIENT
  Age: 38 Year
  Sex: Female
  Weight: 47 kg

DRUGS (7)
  1. 10% GLUCOSE  INJECTION [Suspect]
     Active Substance: DEXTROSE
     Indication: MEDICATION DILUTION
     Dosage: SOLUTION
     Route: 042
     Dates: start: 20170522
  2. DEXAMETHASONE. [Suspect]
     Active Substance: DEXAMETHASONE
     Indication: ADVERSE EVENT
     Route: 042
     Dates: start: 20170522
  3. CALCIUM GLUCONATE. [Suspect]
     Active Substance: CALCIUM GLUCONATE
     Indication: ADVERSE EVENT
     Route: 042
     Dates: start: 20170522
  4. COMPOUND SODIUM CHLORIDE INJECTION [Suspect]
     Active Substance: SODIUM CHLORIDE
     Indication: ADVERSE EVENT
     Route: 041
     Dates: start: 20170522
  5. SODIUM CHLORIDE. [Suspect]
     Active Substance: SODIUM CHLORIDE
     Indication: MEDICATION DILUTION
     Route: 041
     Dates: start: 20170522, end: 20170522
  6. XIN TAILIN (CEFAZOLIN SODIUM PENTAHYDRATE) [Suspect]
     Active Substance: CEFAZOLIN SODIUM PENTAHYDRATE
     Indication: POST PROCEDURAL INFECTION
     Route: 041
     Dates: start: 20170522, end: 20170522
  7. 5% GLUCOSE  INJECTION [Suspect]
     Active Substance: DEXTROSE
     Indication: SUPPLEMENTATION THERAPY
     Route: 041
     Dates: start: 20170522, end: 20170522

REACTIONS (4)
  - Pruritus [Recovered/Resolved]
  - Urinary retention [Unknown]
  - Face oedema [Recovered/Resolved]
  - Hypoaesthesia [Recovered/Resolved]

NARRATIVE: CASE EVENT DATE: 20170522
